FAERS Safety Report 5599226-3 (Version None)
Quarter: 2008Q1

REPORT INFORMATION
  Report Type: 
  Country: None (occurrence: None)
  Receive Date: 20080117
  Receipt Date: 20080111
  Transmission Date: 20080703
  Serious: Yes (Death)
  Sender: FDA-Public Use
  Company Number: 2008-00010

PATIENT
  Age: 65 Year
  Sex: Male
  Weight: 108.5 kg

DRUGS (51)
  1. VELCADE [Suspect]
     Indication: CHRONIC LYMPHOCYTIC LEUKAEMIA
     Dosage: 3.00 MG, INTRAVENOUS, 2310.00 MG, INTRAVENOUS
     Route: 042
     Dates: start: 20071206, end: 20071221
  2. VELCADE [Suspect]
     Indication: CHRONIC LYMPHOCYTIC LEUKAEMIA
     Dosage: 3.00 MG, INTRAVENOUS, 2310.00 MG, INTRAVENOUS
     Route: 042
     Dates: start: 20071213
  3. RITUXAN [Suspect]
     Indication: CHRONIC LYMPHOCYTIC LEUKAEMIA
     Dosage: 870 MG, INTRAVENOUS
     Route: 042
     Dates: start: 20071206, end: 20071206
  4. MELPHALAN(MELPHALAN) VIAL [Suspect]
     Indication: CHRONIC LYMPHOCYTIC LEUKAEMIA
     Dosage: 226.00 MG, INTRAVENOUS
     Route: 042
     Dates: start: 20071218
  5. ETOPOSIDE [Suspect]
     Indication: CHRONIC LYMPHOCYTIC LEUKAEMIA
     Dosage: 211.00 MG, INTRAVENOUS
     Route: 042
     Dates: start: 20071214
  6. CYTARABINE [Suspect]
     Indication: CHRONIC LYMPHOCYTIC LEUKAEMIA
     Dosage: 211.00 MG, INTRAVENOUS
     Route: 042
     Dates: start: 20071214
  7. CARMUSTINE [Suspect]
     Indication: CHRONIC LYMPHOCYTIC LEUKAEMIA
     Dosage: 633.00 MG,  INTRAVENOUS
     Route: 042
     Dates: start: 20071213
  8. ETOMIDATE [Concomitant]
  9. METHOTREXATE [Concomitant]
  10. NOREPINEPHRINE BITARTRATE [Concomitant]
  11. MEPERIDINE HCL [Concomitant]
  12. POTASSIUM PHOSPHATE DIBASIC (POTASSIUM PHOSPHATE DIBASIC) [Concomitant]
  13. POTASSIUM CHLORIDE [Concomitant]
  14. MAGNESIUM SULFATE [Concomitant]
  15. SUCCINYLCHOLINE CHLORIDE [Concomitant]
  16. MIDAZOLAM HCL [Concomitant]
  17. FENTANYL CITRATE [Concomitant]
  18. ALBUTEROL [Concomitant]
  19. ETOMIDATE [Concomitant]
  20. PHENYLEPHRINE (PHENYLEPHRINE) [Concomitant]
  21. TACROLIMUS [Concomitant]
  22. HYDROMORPHONE (HYDROMORPONE) [Concomitant]
  23. PHYTONADIONE [Concomitant]
  24. URSODIOL (URSODEOXYCHOLIC ACID) [Concomitant]
  25. HYDROCORTISONE (HYDROCORTISONE) [Concomitant]
  26. METRONIDAZOLE [Concomitant]
  27. POSACONAZOLE [Concomitant]
  28. DIPHENHYDRAMINE HCL [Concomitant]
  29. ACYCLOVIR [Concomitant]
  30. METHYLPREDNISOLONE [Concomitant]
  31. CALCIUM GLUCONATE [Concomitant]
  32. CALCIUM CARBONATE (CALCIUM CARBONATE) [Concomitant]
  33. METOPROLOL TARTRATE [Concomitant]
  34. NALOXONE [Concomitant]
  35. ONDANSETRON HCL [Concomitant]
  36. ALUMINIUM W/MAGNESIUM HYDROXIDE/SIMETICONE/ (MAGNESIUM HYDROXIDE, SIME [Concomitant]
  37. LOPERAMIDE [Concomitant]
  38. FILGRASTIM [Concomitant]
  39. ESOMEPRAZOLE SODIUM [Concomitant]
  40. ESOMEPRAZOLE MAGNESIUM [Concomitant]
  41. LEUCOVORIN CALCIUM [Concomitant]
  42. FUROSEMIDE [Concomitant]
  43. VALACYCLOVIR [Concomitant]
  44. DEXAMETHASONE SODIUM PHOSPHATE [Concomitant]
  45. ALLOPURINOL [Concomitant]
  46. LORAZEPAM [Concomitant]
  47. AMLODIPINE [Concomitant]
  48. LEVABUTEROL HYDROCHLORIDE [Concomitant]
  49. VALACICLOVIR HYDROCHLORIDE (VALACICLOVIR HYDROCHLORIDE) [Concomitant]
  50. DIPHENOXYLATE W/ATROPINE SULFATE (ATROPINE SULFATE, DIPHENOXYLATE) [Concomitant]
  51. VALGANCICLOVIR HYDROCHLORIDE (VALGANCICLOVIR HYDROCHLORIDE) [Concomitant]

REACTIONS (4)
  - BACTERAEMIA [None]
  - BACTERIAL TOXAEMIA [None]
  - FUNGAEMIA [None]
  - SEPTIC SHOCK [None]
